FAERS Safety Report 6567136-0 (Version None)
Quarter: 2010Q1

REPORT INFORMATION
  Report Type: 
  Country: None (occurrence: None)
  Receive Date: 20100128
  Receipt Date: 20100111
  Transmission Date: 20100710
  Serious: Yes (Other)
  Sender: FDA-Public Use
  Company Number: B0628935A

PATIENT
  Age: 43 Year
  Sex: Male

DRUGS (3)
  1. LAMOTRIGINE [Suspect]
     Indication: DEPRESSION
     Dosage: 50 MG / PER DAY
  2. CLOZAPINE [Suspect]
     Indication: BIPOLAR DISORDER
     Dosage: 350 MG / PER DAY / ORAL
     Route: 048
  3. LORAZEPAM [Concomitant]

REACTIONS (7)
  - BODY TEMPERATURE INCREASED [None]
  - DEPRESSION [None]
  - DERMATITIS ALLERGIC [None]
  - DISORIENTATION [None]
  - DIZZINESS [None]
  - DRUG LEVEL INCREASED [None]
  - DRUG TOXICITY [None]
